FAERS Safety Report 25749529 (Version 1)
Quarter: 2025Q3

REPORT INFORMATION
  Report Type: Spontaneous
  Country: EU (occurrence: EU)
  Receive Date: 20250902
  Receipt Date: 20250902
  Transmission Date: 20251020
  Serious: Yes (Other)
  Sender: RANBAXY
  Company Number: EU-SUN PHARMACEUTICAL INDUSTRIES LTD-2025RR-524838

PATIENT
  Age: 37 Year
  Sex: Male

DRUGS (5)
  1. LEVETIRACETAM [Interacting]
     Active Substance: LEVETIRACETAM
     Indication: Product used for unknown indication
     Route: 065
  2. URSODIOL [Interacting]
     Active Substance: URSODIOL
     Indication: Cholelithiasis
     Dosage: 450 MG ALLA SERA DOPO CENA
     Route: 048
     Dates: start: 20250130, end: 20250225
  3. CENOBAMATE [Interacting]
     Active Substance: CENOBAMATE
     Indication: Product used for unknown indication
     Route: 065
     Dates: start: 202307
  4. CLOBAZAM [Interacting]
     Active Substance: CLOBAZAM
     Indication: Product used for unknown indication
     Dosage: 10 MILLIGRAM, QD
     Route: 065
  5. LACOSAMIDE [Interacting]
     Active Substance: LACOSAMIDE
     Indication: Product used for unknown indication
     Route: 065

REACTIONS (2)
  - Partial seizures [Recovered/Resolved]
  - Drug interaction [Recovered/Resolved]

NARRATIVE: CASE EVENT DATE: 20250225
